FAERS Safety Report 13983587 (Version 1)
Quarter: 2017Q3

REPORT INFORMATION
  Report Type: Spontaneous
  Country: FR (occurrence: FR)
  Receive Date: 20170918
  Receipt Date: 20170918
  Transmission Date: 20171128
  Serious: Yes (Other)
  Sender: FDA-Public Use
  Company Number: FR-PFIZER INC-2017395951

PATIENT
  Sex: Male

DRUGS (3)
  1. ADIAZINE [Suspect]
     Active Substance: SULFADIAZINE
     Indication: CEREBRAL TOXOPLASMOSIS
     Dosage: UNK
     Route: 048
     Dates: start: 20170809, end: 20170818
  2. MALOCIDE /00112501/ [Suspect]
     Active Substance: PYRIMETHAMINE
     Indication: CEREBRAL TOXOPLASMOSIS
     Dosage: UNK
     Route: 048
     Dates: start: 20170809
  3. DALACINE [Suspect]
     Active Substance: CLINDAMYCIN HYDROCHLORIDE
     Indication: CEREBRAL TOXOPLASMOSIS
     Dosage: UNK
     Route: 048
     Dates: start: 20170818

REACTIONS (1)
  - Hepatocellular injury [Not Recovered/Not Resolved]

NARRATIVE: CASE EVENT DATE: 201708
